FAERS Safety Report 9153405 (Version 2)
Quarter: 2013Q2

REPORT INFORMATION
  Report Type: Spontaneous
  Country: US (occurrence: US)
  Receive Date: 20130311
  Receipt Date: 20130412
  Transmission Date: 20140414
  Serious: Yes (Hospitalization)
  Sender: FDA-Public Use
  Company Number: US-JNJFOC-20130215892

PATIENT
  Age: 53 Year
  Sex: Male
  Weight: 97.07 kg

DRUGS (10)
  1. RISPERDAL [Suspect]
     Indication: PSYCHOTIC DISORDER
     Route: 048
     Dates: start: 20120808
  2. RISPERDAL [Suspect]
     Indication: SCHIZOPHRENIA
     Route: 048
     Dates: start: 20120808
  3. METFORMIN [Concomitant]
     Indication: DIABETES MELLITUS
     Route: 048
     Dates: start: 201211
  4. NEURONTIN [Concomitant]
     Indication: DRUG THERAPY
     Route: 048
     Dates: start: 20120808
  5. NEURONTIN [Concomitant]
     Indication: CONVULSION
     Route: 048
     Dates: start: 20120808
  6. COGENTIN [Concomitant]
     Indication: EXTRAPYRAMIDAL DISORDER
     Route: 048
     Dates: start: 20120808
  7. VITAMIN E (TOCOPHERYL ACETATE) [Concomitant]
     Indication: EXTRAPYRAMIDAL DISORDER
     Route: 065
     Dates: start: 20120808
  8. FISH OIL [Concomitant]
     Indication: EXTRAPYRAMIDAL DISORDER
     Route: 065
     Dates: start: 20120808
  9. CALCIUM AND VITAMIN D [Concomitant]
     Indication: AFFECTIVE DISORDER
     Dosage: AT 4 PM.
     Route: 065
     Dates: start: 20120808
  10. CALCIUM AND VITAMIN D [Concomitant]
     Indication: BONE DISORDER
     Dosage: AT 4 PM.
     Route: 065
     Dates: start: 20120808

REACTIONS (3)
  - Blood sodium decreased [Recovered/Resolved]
  - Psychotic disorder [Unknown]
  - Diabetes insipidus [Recovering/Resolving]
